FAERS Safety Report 5678083-0 (Version None)
Quarter: 2008Q1

REPORT INFORMATION
  Report Type: 
  Country: None (occurrence: None)
  Receive Date: 20080319
  Receipt Date: 20080226
  Transmission Date: 20080703
  Serious: Yes (Hospitalization)
  Sender: FDA-Public Use
  Company Number: 2008S1003352

PATIENT
  Age: 17 Year
  Sex: Female

DRUGS (3)
  1. DICLOFENAC SODIUM [Suspect]
     Indication: DYSMENORRHOEA
     Dosage: 75 MG; DAILY
  2. DIPYRONE TAB [Suspect]
     Indication: DYSMENORRHOEA
     Dosage: 4000 MG; DAILY
  3. ACETAMINOPHEN [Suspect]
     Indication: DYSMENORRHOEA
     Dosage: 500 MG; DAILY

REACTIONS (6)
  - FLANK PAIN [None]
  - HEART RATE INCREASED [None]
  - HYPERTENSION [None]
  - OEDEMA [None]
  - PYREXIA [None]
  - RENAL FAILURE ACUTE [None]
